FAERS Safety Report 9543890 (Version 2)
Quarter: 2014Q3

REPORT INFORMATION
  Report Type: Spontaneous
  Country: CA (occurrence: CA)
  Receive Date: 20130923
  Receipt Date: 20140912
  Transmission Date: 20150326
  Serious: Yes (Other)
  Sender: FDA-Public Use
  Company Number: CA-009507513-1309CAN009885

PATIENT
  Age: 82 Year
  Sex: Female
  Weight: 72.56 kg

DRUGS (7)
  1. CALCIUM (UNSPECIFIED) (+) VITAMIN D (UNSPECIFIED) [Concomitant]
     Active Substance: CALCIUM CARBONATE\VITAMIN D
     Dosage: 1500MG+800 MG DAILY
  2. ADALAT CC [Concomitant]
     Active Substance: NIFEDIPINE
     Dosage: 20 MG X 8 YEARS
  3. SYNTHROID [Concomitant]
     Active Substance: LEVOTHYROXINE SODIUM
     Dosage: .05 MG, QD
  4. METFORMIN [Concomitant]
     Active Substance: METFORMIN HYDROCHLORIDE
     Dosage: 500 MG, BID X 7 YEARS
  5. FOSAVANCE [Suspect]
     Active Substance: ALENDRONATE SODIUM\CHOLECALCIFEROL
     Indication: OSTEOPOROSIS PROPHYLAXIS
     Dosage: STRENGTH : 70/5600 UNITS UNSPECIFIED, 1 DF, QW
     Route: 048
     Dates: start: 20110330, end: 20110819
  6. MONOPRIL [Concomitant]
     Active Substance: FOSINOPRIL SODIUM
     Dosage: 40 MG X 25 YEARS
  7. CELEBREX [Concomitant]
     Active Substance: CELECOXIB
     Dosage: 160 MG, QD X 10 YEARS OCCASIONALLY 160 MG, TWICE A DAY

REACTIONS (4)
  - Arthralgia [Recovered/Resolved with Sequelae]
  - Age-related macular degeneration [Recovered/Resolved with Sequelae]
  - Eye discharge [Recovered/Resolved]
  - Ocular hyperaemia [Recovered/Resolved]

NARRATIVE: CASE EVENT DATE: 20110406
